FAERS Safety Report 15726821 (Version 4)
Quarter: 2019Q1

REPORT INFORMATION
  Report Type: Report from Study
  Country: US (occurrence: US)
  Receive Date: 20181217
  Receipt Date: 20190208
  Transmission Date: 20190417
  Serious: Yes (Death, Life-Threatening, Hospitalization)
  Sender: FDA-Public Use
  Company Number: US-ROCHE-2231008

PATIENT
  Age: 43 Year
  Sex: Female
  Weight: 67.4 kg

DRUGS (42)
  1. IMBRUVICA [Concomitant]
     Active Substance: IBRUTINIB
     Route: 065
  2. MSIR [Concomitant]
     Active Substance: MORPHINE SULFATE
     Dosage: 20MG/5ML
     Route: 065
  3. POLYETHYLENE GLYCOL [Concomitant]
     Active Substance: POLYETHYLENE GLYCOLS
     Route: 065
  4. ACCUNEB [Concomitant]
     Active Substance: ALBUTEROL SULFATE
     Dosage: 1.25 MG/3 ML
     Route: 065
  5. NORVASC [Concomitant]
     Active Substance: AMLODIPINE BESYLATE
     Route: 065
  6. PROCHLORPERAZINE. [Concomitant]
     Active Substance: PROCHLORPERAZINE
     Route: 065
  7. COMPAZINE [Concomitant]
     Active Substance: PROCHLORPERAZINE MALEATE
     Route: 065
  8. ZOVIRAX [Concomitant]
     Active Substance: ACYCLOVIR
     Route: 065
  9. REFRESH PLUS [Concomitant]
     Active Substance: CARBOXYMETHYLCELLULOSE SODIUM
     Route: 065
  10. FLUTICASONE. [Concomitant]
     Active Substance: FLUTICASONE
     Route: 065
  11. SULFAMETHOXAZOLE/TRIMETHOPRIM [Concomitant]
     Active Substance: SULFAMETHOXAZOLE\TRIMETHOPRIM
     Dosage: 80-400 MG
     Route: 065
  12. COLACE [Concomitant]
     Active Substance: DOCUSATE SODIUM
     Route: 065
  13. LIDODERM [Concomitant]
     Active Substance: LIDOCAINE
     Dosage: PATCH
     Route: 065
  14. DOCUSATE [Concomitant]
     Active Substance: DOCUSATE
     Route: 065
  15. LOVENOX [Concomitant]
     Active Substance: ENOXAPARIN SODIUM
     Dosage: 60 MG/0.6ML
     Route: 065
  16. ZOFRAN [Concomitant]
     Active Substance: ONDANSETRON HYDROCHLORIDE
     Route: 065
  17. PROTONIX [Concomitant]
     Active Substance: PANTOPRAZOLE SODIUM
     Dosage: DELAYED RELEASE
     Route: 065
  18. DITROPAN [Concomitant]
     Active Substance: OXYBUTYNIN CHLORIDE
     Route: 065
  19. LACTULOSE. [Concomitant]
     Active Substance: LACTULOSE
     Dosage: 10GM/15ML
     Route: 065
  20. NOXAFIL [Concomitant]
     Active Substance: POSACONAZOLE
     Dosage: ENTERIC COATED TABLET
     Route: 065
  21. MIRALAX [Concomitant]
     Active Substance: POLYETHYLENE GLYCOL 3350
     Route: 065
  22. SENOKOT [Concomitant]
     Active Substance: SENNOSIDES
     Route: 065
  23. PIRFENIDONE. [Suspect]
     Active Substance: PIRFENIDONE
     Indication: OBLITERATIVE BRONCHIOLITIS
     Route: 065
     Dates: start: 20180324, end: 20180503
  24. ACCUNEB [Concomitant]
     Active Substance: ALBUTEROL SULFATE
     Dosage: 2.5-0.5 MG
     Route: 065
  25. CHOLECALCIFEROL [Concomitant]
     Active Substance: CHOLECALCIFEROL
     Dosage: 1000 UNIT
     Route: 065
  26. ATIVAN [Concomitant]
     Active Substance: LORAZEPAM
     Route: 065
  27. LOTEMAX [Concomitant]
     Active Substance: LOTEPREDNOL ETABONATE
     Route: 065
  28. MONTELUKAST [Concomitant]
     Active Substance: MONTELUKAST SODIUM
     Route: 065
  29. FLONASE [Concomitant]
     Active Substance: FLUTICASONE PROPIONATE
     Route: 065
  30. BACTRIM [Concomitant]
     Active Substance: SULFAMETHOXAZOLE\TRIMETHOPRIM
     Dosage: 800-160 MCG, 80 TO 400 MG TABLET
     Route: 065
  31. DUONEB [Concomitant]
     Active Substance: ALBUTEROL SULFATE\IPRATROPIUM BROMIDE
     Dosage: 0.5 MG-3 MG, 2.5 MG - 0.5 MG/3ML
     Route: 065
  32. MORPHIN [Concomitant]
     Active Substance: MORPHINE
     Dosage: 20 MG/5ML, 20MG/ML CONCENTARTE
     Route: 048
  33. NORVASC [Concomitant]
     Active Substance: AMLODIPINE BESYLATE
     Route: 065
  34. PEPCID AC [Concomitant]
     Active Substance: FAMOTIDINE
     Route: 065
  35. ROXICODONE [Concomitant]
     Active Substance: OXYCODONE HYDROCHLORIDE
     Route: 065
  36. RAPAMUNE [Concomitant]
     Active Substance: SIROLIMUS
     Dosage: 1 MG/ML
     Route: 048
  37. AUGMENTIN [Concomitant]
     Active Substance: AMOXICILLIN\CLAVULANATE POTASSIUM
  38. CIPRO [Concomitant]
     Active Substance: CIPROFLOXACIN HYDROCHLORIDE
  39. CLARITIN [Concomitant]
     Active Substance: LORATADINE
     Route: 065
  40. SODIUM CHLORIDE. [Concomitant]
     Active Substance: SODIUM CHLORIDE
     Route: 065
  41. REFRESH PLUS [Concomitant]
     Active Substance: CARBOXYMETHYLCELLULOSE SODIUM
  42. ROBITUSSIN (GUAIFENESIN) [Concomitant]
     Active Substance: GUAIFENESIN
     Dosage: 100 MG/5 ML
     Route: 048

REACTIONS (8)
  - Hypercapnia [Unknown]
  - Pneumonia pseudomonal [Fatal]
  - Septic shock [Unknown]
  - Sepsis [Recovered/Resolved]
  - Pyrexia [Recovered/Resolved]
  - Acidosis [Unknown]
  - Acute respiratory failure [Fatal]
  - Lung infection [Not Recovered/Not Resolved]

NARRATIVE: CASE EVENT DATE: 20181010
